FAERS Safety Report 25770082 (Version 1)
Quarter: 2025Q3

REPORT INFORMATION
  Report Type: Spontaneous
  Country: EG (occurrence: EG)
  Receive Date: 20250907
  Receipt Date: 20250907
  Transmission Date: 20251021
  Serious: Yes (Other)
  Sender: MERCK SHARP & DOHME LLC
  Company Number: EG-009507513-2325948

PATIENT
  Age: 67 Year
  Sex: Female

DRUGS (4)
  1. KEYTRUDA [Suspect]
     Active Substance: PEMBROLIZUMAB
     Indication: Triple negative breast cancer
     Dosage: THE 2ND INFUSION
     Route: 042
     Dates: start: 20250806, end: 20250806
  2. KEYTRUDA [Suspect]
     Active Substance: PEMBROLIZUMAB
     Indication: Triple negative breast cancer
     Dosage: THE 1ST INFUSION
     Route: 042
     Dates: start: 2025, end: 2025
  3. Chemotherapy (Taxol + Carboplatin) [Concomitant]
     Indication: Triple negative breast cancer
     Route: 042
  4. Chemotherapy (Taxol + Carboplatin) [Concomitant]
     Indication: Triple negative breast cancer

REACTIONS (2)
  - Neutrophil count decreased [Unknown]
  - Product availability issue [Unknown]

NARRATIVE: CASE EVENT DATE: 20250101
